FAERS Safety Report 4378753-0 (Version None)
Quarter: 2004Q2

REPORT INFORMATION
  Report Type: 
  Country: None (occurrence: None)
  Receive Date: 20040609
  Receipt Date: 20040521
  Transmission Date: 20050107
  Serious: Yes (Death)
  Sender: FDA-Public Use
  Company Number: USA040568171

PATIENT
  Age: 75 Year
  Sex: Male

DRUGS (3)
  1. FORTEO [Suspect]
     Dates: start: 20030901
  2. PREDNISONE [Suspect]
  3. ALLOPURINOL [Concomitant]

REACTIONS (1)
  - MYOCARDIAL INFARCTION [None]
